FAERS Safety Report 17908766 (Version 4)
Quarter: 2021Q1

REPORT INFORMATION
  Report Type: Spontaneous
  Country: NO (occurrence: NO)
  Receive Date: 20200617
  Receipt Date: 20210324
  Transmission Date: 20210419
  Serious: Yes (Hospitalization)
  Sender: FDA-Public Use
  Company Number: NO-BAUSCH-BL-2020-017216

PATIENT
  Age: 14 Year
  Sex: Male
  Weight: 65 kg

DRUGS (16)
  1. VINCRISTINE [Suspect]
     Active Substance: VINCRISTINE
     Indication: CHEMOTHERAPY
     Route: 065
     Dates: end: 20200522
  2. PROPOFOL. [Concomitant]
     Active Substance: PROPOFOL
     Indication: ANAESTHESIA
     Dates: start: 20200414, end: 20200414
  3. DEXAMETHASONE. [Suspect]
     Active Substance: DEXAMETHASONE
     Indication: CHEMOTHERAPY
     Route: 065
     Dates: end: 20200528
  4. FAMODITINE [Concomitant]
     Active Substance: FAMOTIDINE
     Indication: NAUSEA
     Dates: start: 20200421, end: 20200429
  5. SODIUM PICOSULFATE [Concomitant]
     Active Substance: SODIUM PICOSULFATE
     Indication: PRODUCT USED FOR UNKNOWN INDICATION
  6. LACTULOSE. [Concomitant]
     Active Substance: LACTULOSE
     Indication: PRODUCT USED FOR UNKNOWN INDICATION
  7. PRONOLOL [Concomitant]
     Indication: ANAESTHESIA
     Dates: start: 20200420, end: 20200420
  8. PALONOSETRON. [Concomitant]
     Active Substance: PALONOSETRON HYDROCHLORIDE
     Indication: NAUSEA
     Dates: start: 20200422, end: 20200429
  9. DEXCHLORPHENIRAMINE [Concomitant]
     Active Substance: DEXCHLORPHENIRAMINE
     Indication: NAUSEA
     Dates: start: 20200326, end: 20200424
  10. IFOSFAMIDE. [Suspect]
     Active Substance: IFOSFAMIDE
     Indication: CHEMOTHERAPY
     Route: 065
     Dates: end: 20200526
  11. OLANZAPINE. [Concomitant]
     Active Substance: OLANZAPINE
     Indication: NAUSEA
     Dates: start: 20200422, end: 20200429
  12. FENTANYL. [Concomitant]
     Active Substance: FENTANYL
     Indication: ANAESTHESIA
     Dates: start: 20200414, end: 20200414
  13. FENTANYL. [Concomitant]
     Active Substance: FENTANYL
     Dates: start: 20200420, end: 20200420
  14. CARBOPLATIN. [Suspect]
     Active Substance: CARBOPLATIN
     Indication: CHEMOTHERAPY
     Route: 065
     Dates: start: 20200522, end: 20200525
  15. IDARUBICIN [Suspect]
     Active Substance: IDARUBICIN
     Indication: CHEMOTHERAPY
     Route: 065
     Dates: end: 20200523
  16. FILGRASTIM [Concomitant]
     Active Substance: FILGRASTIM
     Indication: NEUTROPENIA
     Dates: start: 20200510, end: 20200512

REACTIONS (1)
  - Febrile neutropenia [Recovered/Resolved]

NARRATIVE: CASE EVENT DATE: 20200505
